FAERS Safety Report 6173037-2 (Version None)
Quarter: 2009Q2

REPORT INFORMATION
  Report Type: 
  Country: None (occurrence: None)
  Receive Date: 20090428
  Receipt Date: 20090423
  Transmission Date: 20091009
  Serious: Yes (Life-Threatening)
  Sender: FDA-Public Use
  Company Number: 2009SP008701

PATIENT
  Age: 29 Year
  Sex: Female
  Weight: 63 kg

DRUGS (1)
  1. POSACONAZOLE [Suspect]
     Indication: FUNGAL INFECTION
     Dosage: 10 ML; BID; PO
     Route: 048
     Dates: start: 20090418, end: 20090418

REACTIONS (6)
  - BLOOD PH DECREASED [None]
  - PULMONARY MASS [None]
  - PULMONARY OEDEMA [None]
  - RALES [None]
  - REFUSAL OF TREATMENT BY RELATIVE [None]
  - RESPIRATORY FAILURE [None]
